FAERS Safety Report 20674222 (Version 1)
Quarter: 2022Q2

REPORT INFORMATION
  Report Type: Spontaneous
  Country: CA (occurrence: CA)
  Receive Date: 20220405
  Receipt Date: 20220405
  Transmission Date: 20220721
  Serious: Yes (Other)
  Sender: FDA-Public Use
  Company Number: CA-TEVA-2022-CA-2022910

PATIENT
  Age: 52 Year
  Sex: Male

DRUGS (1)
  1. FENTANYL [Suspect]
     Active Substance: FENTANYL
     Indication: Product used for unknown indication
     Route: 065

REACTIONS (4)
  - Amnestic disorder [Unknown]
  - Cerebral ischaemia [Unknown]
  - Leukoencephalopathy [Unknown]
  - Overdose [Unknown]
